FAERS Safety Report 9425017 (Version 1)
Quarter: 2013Q3

REPORT INFORMATION
  Report Type: Spontaneous
  Country: US (occurrence: US)
  Receive Date: 20130729
  Receipt Date: 20130729
  Transmission Date: 20140515
  Serious: No
  Sender: FDA-Public Use
  Company Number: US-PFIZER INC-2013219851

PATIENT
  Sex: Male

DRUGS (2)
  1. LYRICA [Suspect]
     Indication: HERPES ZOSTER
     Dosage: 300 MG, 3X/DAY
  2. ADVIL [Suspect]
     Dosage: UNK, 8X/DAY

REACTIONS (2)
  - Intentional drug misuse [Unknown]
  - Drug ineffective [Unknown]
